FAERS Safety Report 5342521-3 (Version None)
Quarter: 2007Q2

REPORT INFORMATION
  Report Type: 
  Country: None (occurrence: None)
  Receive Date: 20070601
  Receipt Date: 20070521
  Transmission Date: 20071010
  Serious: Yes (Other)
  Sender: FDA-Public Use
  Company Number: SE-PFIZER INC-2007023936

PATIENT
  Age: 77 Year
  Sex: Male

DRUGS (12)
  1. LYRICA [Suspect]
     Indication: GENERALISED ANXIETY DISORDER
     Route: 048
  2. LYRICA [Suspect]
     Indication: ANXIETY
  3. OMEPRAZOLE [Concomitant]
     Route: 048
     Dates: start: 20050101
  4. METFORMIN HCL [Concomitant]
     Route: 048
  5. ACETYLSALICYLIC ACID SRT [Concomitant]
     Route: 048
     Dates: start: 20050101
  6. ENALAPRIL MALEATE [Concomitant]
     Route: 048
  7. RISPERIDONE [Concomitant]
     Route: 048
     Dates: start: 20050101
  8. OXAZEPAM [Concomitant]
     Route: 048
     Dates: start: 20060101
  9. ZOPICLONE [Concomitant]
     Route: 048
     Dates: start: 20050101
  10. MIRTAZAPINE [Concomitant]
     Route: 048
     Dates: start: 20050101
  11. ESCITALOPRAM OXALATE [Concomitant]
     Route: 048
     Dates: start: 20050101
  12. LACTULOSE [Concomitant]

REACTIONS (7)
  - ABDOMINAL DISTENSION [None]
  - BALANCE DISORDER [None]
  - DYSPNOEA [None]
  - JOINT SWELLING [None]
  - OEDEMA PERIPHERAL [None]
  - RENAL DISORDER [None]
  - VISION BLURRED [None]
